FAERS Safety Report 10157782 (Version 1)
Quarter: 2014Q2

REPORT INFORMATION
  Report Type: Report from Study
  Country: BR (occurrence: BR)
  Receive Date: 20140507
  Receipt Date: 20140507
  Transmission Date: 20141212
  Serious: Yes (Other)
  Sender: FDA-Public Use
  Company Number: PHHY2014BR053625

PATIENT
  Age: 48 Year
  Sex: Female
  Weight: 82 kg

DRUGS (9)
  1. SANDOSTATIN LAR [Suspect]
     Indication: ACROMEGALY
     Dosage: 1 DF, EVERY 28 DAYS (20 MG)
     Route: 030
     Dates: start: 201008, end: 201101
  2. SANDOSTATIN LAR [Suspect]
     Dosage: 1 DF, EVERY 28 DAYS (30 MG)
     Route: 030
     Dates: start: 201101
  3. FLUOXETIN [Suspect]
     Indication: DEPRESSION
     Dosage: 1 DF, DAILY
     Dates: start: 2004
  4. REMERON [Suspect]
     Indication: DEPRESSION
     Dosage: 1 DF, UNK
  5. ALPRAZOLAM [Suspect]
     Indication: ANXIETY
     Dosage: 3 DF, DAILY
     Dates: start: 1998
  6. LEFLUNOMIDA [Concomitant]
     Indication: RHEUMATOID ARTHRITIS
     Dosage: 1 DF, DAILY
     Dates: start: 2008
  7. CORTISONE [Concomitant]
     Indication: RHEUMATOID ARTHRITIS
     Dosage: 2 DF, BID (5 MG)
     Dates: start: 2008
  8. CORTISONE [Concomitant]
     Dosage: 1 DF, BID (10 MG)
     Dates: start: 2008
  9. REUQUINOL [Concomitant]
     Indication: RHEUMATOID ARTHRITIS
     Dosage: 1 DF, (FROM MONDAY TO FRIDAY)
     Dates: start: 2008

REACTIONS (12)
  - Rheumatoid arthritis [Not Recovered/Not Resolved]
  - Influenza [Not Recovered/Not Resolved]
  - Carpal tunnel syndrome [Unknown]
  - Pyrexia [Not Recovered/Not Resolved]
  - Panic disorder [Not Recovered/Not Resolved]
  - Hypersomnia [Unknown]
  - Pain [Unknown]
  - Hypoaesthesia [Unknown]
  - Peripheral swelling [Unknown]
  - Therapeutic response changed [Unknown]
  - Asthenia [Not Recovered/Not Resolved]
  - Blood growth hormone increased [Unknown]
